FAERS Safety Report 12988690 (Version 2)
Quarter: 2016Q4

REPORT INFORMATION
  Report Type: Report from Study
  Country: BG (occurrence: BG)
  Receive Date: 20161130
  Receipt Date: 20161230
  Transmission Date: 20170207
  Serious: Yes (Death, Hospitalization, Other)
  Sender: FDA-Public Use
  Company Number: BG-AMGEN-BGRSL2016168315

PATIENT
  Age: 67 Year
  Sex: Male

DRUGS (8)
  1. LEUCOVORINE [Suspect]
     Active Substance: LEUCOVORIN
     Indication: COLON CANCER
  2. OXALIPLATINA [Suspect]
     Active Substance: OXALIPLATIN
     Indication: RECTAL CANCER
     Dosage: 115 MG, Q2WK
     Route: 065
     Dates: start: 20161019, end: 20161121
  3. OXALIPLATINA [Suspect]
     Active Substance: OXALIPLATIN
     Indication: COLON CANCER
  4. VECTIBIX [Suspect]
     Active Substance: PANITUMUMAB
     Indication: COLON CANCER
  5. LEUCOVORINE [Suspect]
     Active Substance: LEUCOVORIN
     Indication: RECTAL CANCER
     Dosage: 700 MG, Q2WK
     Route: 065
     Dates: start: 20161019, end: 20161121
  6. 5-FU [Suspect]
     Active Substance: FLUOROURACIL
     Indication: COLON CANCER
  7. VECTIBIX [Suspect]
     Active Substance: PANITUMUMAB
     Indication: RECTAL CANCER
     Dosage: 420 MG, Q2WK
     Route: 042
     Dates: start: 20161104, end: 20161121
  8. 5-FU [Suspect]
     Active Substance: FLUOROURACIL
     Indication: RECTAL CANCER
     Dosage: 4000 MG, Q2WK
     Route: 065
     Dates: start: 20161019, end: 20161121

REACTIONS (6)
  - General physical health deterioration [Unknown]
  - Thrombocytopenia [Not Recovered/Not Resolved]
  - Haematuria [Not Recovered/Not Resolved]
  - Cardiac cirrhosis [Not Recovered/Not Resolved]
  - Death [Fatal]
  - Cardiac failure [Unknown]

NARRATIVE: CASE EVENT DATE: 2016
